FAERS Safety Report 19299524 (Version 1)
Quarter: 2021Q2

REPORT INFORMATION
  Report Type: Report from Study
  Country: IT (occurrence: IT)
  Receive Date: 20210524
  Receipt Date: 20210524
  Transmission Date: 20210717
  Serious: Yes (Other)
  Sender: FDA-Public Use
  Company Number: IT-EISAI MEDICAL RESEARCH-EC-2021-093007

PATIENT
  Age: 75 Year
  Sex: Female

DRUGS (1)
  1. LENVATINIB [Suspect]
     Active Substance: LENVATINIB
     Indication: SALIVARY GLAND CANCER
     Route: 048
     Dates: start: 20200728, end: 20200922

REACTIONS (3)
  - Hypothyroidism [Recovering/Resolving]
  - Asthenia [Recovering/Resolving]
  - Mucosal toxicity [Recovering/Resolving]

NARRATIVE: CASE EVENT DATE: 20200922
